FAERS Safety Report 6196489-0 (Version None)
Quarter: 2009Q2

REPORT INFORMATION
  Report Type: 
  Country: None (occurrence: None)
  Receive Date: 20090520
  Receipt Date: 20090505
  Transmission Date: 20091009
  Serious: Yes (Other)
  Sender: FDA-Public Use
  Company Number: FR-JNJFOC-20090503578

PATIENT
  Sex: Female
  Weight: 60 kg

DRUGS (7)
  1. ZALDIAR [Suspect]
     Indication: PAIN
     Route: 048
     Dates: start: 20090407, end: 20090410
  2. LEVOTHYROX [Concomitant]
     Route: 048
  3. LANTUS [Concomitant]
     Route: 058
  4. ACETYLSALICYLATE LYSINE [Concomitant]
     Route: 048
  5. FORTZAAR [Concomitant]
     Route: 048
  6. NEBILOX [Concomitant]
     Route: 048
  7. ELISOR [Concomitant]
     Route: 048

REACTIONS (5)
  - HYPOACUSIS [None]
  - NAUSEA [None]
  - OLIGURIA [None]
  - VISUAL ACUITY REDUCED [None]
  - VOMITING [None]
